FAERS Safety Report 5871501-4 (Version None)
Quarter: 2008Q3

REPORT INFORMATION
  Report Type: 
  Country: None (occurrence: None)
  Receive Date: 20080905
  Receipt Date: 20080303
  Transmission Date: 20090109
  Serious: No
  Sender: FDA-Public Use
  Company Number: A0712949A

PATIENT
  Age: 62 Year
  Sex: Male

DRUGS (7)
  1. REQUIP [Suspect]
     Indication: RESTLESS LEGS SYNDROME
     Dosage: 3MG THREE TIMES PER DAY
     Route: 048
     Dates: start: 20070201
  2. LIPITOR [Concomitant]
  3. ZETIA [Concomitant]
  4. FISH OIL [Concomitant]
  5. UNKNOWN MEDICATION [Concomitant]
  6. ASPIRIN [Concomitant]
  7. VERAPAMIL [Concomitant]

REACTIONS (5)
  - DRUG INEFFECTIVE [None]
  - FATIGUE [None]
  - FEELINGS OF WORTHLESSNESS [None]
  - LAZINESS [None]
  - SOMNOLENCE [None]
